FAERS Safety Report 8720611 (Version 2)
Quarter: 2015Q1

REPORT INFORMATION
  Report Type: Report from Study
  Country: DE (occurrence: DE)
  Receive Date: 20120813
  Receipt Date: 20150226
  Transmission Date: 20150721
  Serious: Yes (Hospitalization)
  Sender: FDA-Public Use
  Company Number: DE-UCBSA-063341

PATIENT
  Sex: Female

DRUGS (19)
  1. TILIDINE [Concomitant]
     Active Substance: TILIDINE
     Dosage: 150/8 MG
     Dates: start: 201007
  2. NEBILET [Concomitant]
     Active Substance: NEBIVOLOL
     Dosage: DAILY DOSE: 5 MG
  3. SODIUM CHLORIDE. [Concomitant]
     Active Substance: SODIUM CHLORIDE
     Indication: PRODUCT USED FOR UNKNOWN INDICATION
     Dosage: UNK
  4. CERTOLIZUMAB PEGOL RA [Suspect]
     Active Substance: CERTOLIZUMAB PEGOL
     Indication: RHEUMATOID ARTHRITIS
     Dosage: CUMULATIVE DOSE : 1200 MG
     Dates: start: 201107, end: 20120104
  5. PREDNISOLONE. [Suspect]
     Active Substance: PREDNISOLONE
     Dosage: 5 MG, ONCE DAILY (QD)
     Dates: start: 200807, end: 201406
  6. FOSAVANCE [Concomitant]
     Active Substance: ALENDRONATE SODIUM\CHOLECALCIFEROL
     Dosage: WEDNESDAYS
  7. MAGNESIUM [Concomitant]
     Active Substance: MAGNESIUM
     Indication: PRODUCT USED FOR UNKNOWN INDICATION
     Dosage: UNK
  8. LEFLUNOMIDE. [Suspect]
     Active Substance: LEFLUNOMIDE
     Dosage: 20 MG, ONCE DAILY (QD)
     Dates: start: 201008, end: 201401
  9. LISINOPRIL. [Concomitant]
     Active Substance: LISINOPRIL
     Dosage: 10 MG, 2X/DAY (BID)
  10. SPASMAX [Concomitant]
     Indication: PRODUCT USED FOR UNKNOWN INDICATION
     Dosage: UNK
  11. CERTOLIZUMAB PEGOL RA [Suspect]
     Active Substance: CERTOLIZUMAB PEGOL
     Dosage: 200 MG, 2X/WEEK
     Dates: start: 20120126
  12. NEBILET [Concomitant]
     Active Substance: NEBIVOLOL
     Dosage: 2.5 MG, ONCE DAILY (QD)
  13. PERFALGAN [Concomitant]
     Active Substance: ACETAMINOPHEN
     Indication: PRODUCT USED FOR UNKNOWN INDICATION
     Dosage: UNK
  14. FALITHROM [Concomitant]
     Active Substance: PHENPROCOUMON
     Dosage: 17-JAN 1 + A HALF TAB,18 JAN 1 TAB, 19-JAN 2 TAB, 20-22 JAN 1 TAB
  15. AMLODIPINE [Concomitant]
     Active Substance: AMLODIPINE BESYLATE
     Dosage: 5 MG, ONCE DAILY (QD)
  16. OXYGEN. [Concomitant]
     Active Substance: OXYGEN
     Indication: PRODUCT USED FOR UNKNOWN INDICATION
     Dosage: UNK
  17. OMEPRAZOL [Concomitant]
     Active Substance: OMEPRAZOLE
     Dosage: 20 MG
  18. LISINOPRIL. [Concomitant]
     Active Substance: LISINOPRIL
     Dosage: DAILY DOSE: 10 MG
  19. CLEXANE [Concomitant]
     Active Substance: ENOXAPARIN SODIUM
     Indication: PRODUCT USED FOR UNKNOWN INDICATION
     Dosage: UNK

REACTIONS (2)
  - Urinary tract infection [Recovered/Resolved]
  - Abscess limb [Recovered/Resolved]

NARRATIVE: CASE EVENT DATE: 20120103
